FAERS Safety Report 7558153-2 (Version None)
Quarter: 2011Q2

REPORT INFORMATION
  Report Type: 
  Country: None (occurrence: None)
  Receive Date: 20110620
  Receipt Date: 20110614
  Transmission Date: 20111010
  Serious: Yes (Hospitalization)
  Sender: FDA-Public Use
  Company Number: US-ABBOTT-11P-163-0715586-00

PATIENT
  Sex: Female
  Weight: 102.15 kg

DRUGS (4)
  1. HUMIRA [Suspect]
     Dosage: 80MG ONCE
     Dates: start: 20100801, end: 20100801
  2. HUMIRA [Suspect]
     Dates: start: 20100801, end: 20100801
  3. HUMIRA [Suspect]
     Indication: CROHN'S DISEASE
     Dates: start: 20100901, end: 20110201
  4. FERROUS SULFATE TAB [Concomitant]
     Indication: ANAEMIA

REACTIONS (17)
  - ARTHRALGIA [None]
  - HYPOAESTHESIA [None]
  - PAIN [None]
  - VOMITING [None]
  - DRUG HYPERSENSITIVITY [None]
  - PALLOR [None]
  - MUSCULOSKELETAL STIFFNESS [None]
  - PERIPHERAL COLDNESS [None]
  - BONE PAIN [None]
  - CONTUSION [None]
  - RASH PUSTULAR [None]
  - ANAEMIA [None]
  - DECREASED APPETITE [None]
  - DIARRHOEA [None]
  - WEIGHT DECREASED [None]
  - ASTHENIA [None]
  - PYREXIA [None]
